FAERS Safety Report 16067000 (Version 1)
Quarter: 2019Q1

REPORT INFORMATION
  Report Type: Spontaneous
  Country: US (occurrence: US)
  Receive Date: 20190313
  Receipt Date: 20190313
  Transmission Date: 20190418
  Serious: Yes (Death)
  Sender: FDA-Public Use
  Company Number: US-JNJFOC-20190313364

PATIENT
  Sex: Female
  Weight: 52.16 kg

DRUGS (1)
  1. HALDOL [Suspect]
     Active Substance: HALOPERIDOL
     Indication: MENTAL STATUS CHANGES
     Dosage: DOSE VARIED BETWEEN 0.5 MG- 2.5 MG.
     Route: 042
     Dates: start: 201612

REACTIONS (2)
  - Abnormal behaviour [Unknown]
  - Cardiovascular disorder [Fatal]

NARRATIVE: CASE EVENT DATE: 201612
